FAERS Safety Report 10082676 (Version 4)
Quarter: 2014Q2

REPORT INFORMATION
  Report Type: Spontaneous
  Country: GB (occurrence: GB)
  Receive Date: 20140416
  Receipt Date: 20140521
  Transmission Date: 20141212
  Serious: Yes (Death, Hospitalization)
  Sender: FDA-Public Use
  Company Number: PHHY2014GB042613

PATIENT
  Age: 78 Year
  Sex: Male
  Weight: 60.5 kg

DRUGS (13)
  1. AMIODARONE [Suspect]
     Indication: ATRIAL FIBRILLATION
     Dosage: 200 MG, QD (EVERY MORNING)
     Route: 048
     Dates: start: 20110825, end: 20140307
  2. AMIODARONE [Suspect]
     Indication: CARDIAC PACEMAKER INSERTION
  3. CLOPIDOGREL [Concomitant]
  4. DIGOXIN [Concomitant]
  5. EZETIMIBE [Concomitant]
  6. FLUDROCORTISONE [Concomitant]
  7. GLYCERYL TRINITRATE [Concomitant]
  8. PARACETAMOL [Concomitant]
  9. RANITIDINE [Concomitant]
  10. SENNA [Concomitant]
  11. PHENOXYMETHYLPENICILLIN [Concomitant]
  12. BISOPROLOL [Concomitant]
  13. AMOXICILLIN [Concomitant]

REACTIONS (6)
  - Hyperthyroidism [Fatal]
  - Pneumonia aspiration [Not Recovered/Not Resolved]
  - Sepsis [Not Recovered/Not Resolved]
  - Agitation [Not Recovered/Not Resolved]
  - Confusional state [Not Recovered/Not Resolved]
  - Thyrotoxic crisis [Not Recovered/Not Resolved]
